FAERS Safety Report 14008421 (Version 1)
Quarter: 2017Q3

REPORT INFORMATION
  Report Type: Spontaneous
  Country: US (occurrence: US)
  Receive Date: 20170925
  Receipt Date: 20170925
  Transmission Date: 20171128
  Serious: Yes (Other)
  Sender: FDA-Public Use
  Company Number: US-SA-2017SA172150

PATIENT
  Age: 80 Year
  Sex: Male

DRUGS (2)
  1. LANTUS SOLOSTAR [Suspect]
     Active Substance: INSULIN GLARGINE
     Dosage: DOSE:16 UNIT(S)
     Route: 051
     Dates: start: 2015
  2. SOLOSTAR [Suspect]
     Active Substance: DEVICE
     Dates: start: 2015

REACTIONS (3)
  - Cerebrovascular accident [Unknown]
  - Urinary tract infection [Unknown]
  - Product use issue [Unknown]
